FAERS Safety Report 5534508-2 (Version None)
Quarter: 2007Q4

REPORT INFORMATION
  Report Type: 
  Country: None (occurrence: None)
  Receive Date: 20071205
  Receipt Date: 20071127
  Transmission Date: 20080405
  Serious: Yes (Hospitalization, Other)
  Sender: FDA-Public Use
  Company Number: US-WYE-H01535207

PATIENT
  Sex: Male
  Weight: 68.1 kg

DRUGS (3)
  1. TORISEL [Suspect]
     Indication: RENAL CELL CARCINOMA STAGE UNSPECIFIED
     Route: 042
     Dates: start: 20070906, end: 20070928
  2. NORVASC [Concomitant]
     Indication: HYPERTENSION
  3. ZOMETA [Concomitant]

REACTIONS (1)
  - METASTASIS [None]
